FAERS Safety Report 22285796 (Version 1)
Quarter: 2023Q2

REPORT INFORMATION
  Report Type: Report from Study
  Country: US (occurrence: US)
  Receive Date: 20230504
  Receipt Date: 20230504
  Transmission Date: 20230722
  Serious: Yes (Other)
  Sender: FDA-Public Use
  Company Number: US-ABBVIE-4751375

PATIENT
  Age: 68 Year
  Sex: Male

DRUGS (1)
  1. HUMIRA [Suspect]
     Active Substance: ADALIMUMAB
     Indication: Colitis ulcerative
     Dosage: CF FORM STRENGTH: 40 MG
     Route: 058
     Dates: start: 20230206, end: 20230501

REACTIONS (6)
  - Retinal tear [Recovering/Resolving]
  - Calcinosis [Recovering/Resolving]
  - Lymphadenopathy [Not Recovered/Not Resolved]
  - Joint swelling [Recovering/Resolving]
  - Lymph node pain [Not Recovered/Not Resolved]
  - Arthralgia [Recovering/Resolving]

NARRATIVE: CASE EVENT DATE: 20230302
